FAERS Safety Report 6475020-6 (Version None)
Quarter: 2009Q4

REPORT INFORMATION
  Report Type: 
  Country: None (occurrence: None)
  Receive Date: 20091204
  Receipt Date: 20090513
  Transmission Date: 20100525
  Serious: Yes (Hospitalization, Other)
  Sender: FDA-Public Use
  Company Number: US-ELI_LILLY_AND_COMPANY-US200903004561

PATIENT
  Sex: Female

DRUGS (5)
  1. ZYPREXA [Suspect]
     Indication: HALLUCINATION
     Dosage: 20 MG, DAILY (1/D)
     Dates: start: 20010101
  2. ZYPREXA [Suspect]
     Dosage: 2.5 MG, DAILY (1/D)
     Dates: start: 20080101
  3. ZYPREXA [Suspect]
     Dosage: 5 MG, DAILY (1/D)
  4. ZYPREXA [Suspect]
     Dosage: 10 MG, DAILY (1/D)
  5. LEXAPRO [Concomitant]

REACTIONS (6)
  - ABNORMAL BEHAVIOUR [None]
  - ASTHMA [None]
  - DYSPHAGIA [None]
  - DYSPNOEA [None]
  - FOREIGN BODY ASPIRATION [None]
  - GASTROINTESTINAL TUBE INSERTION [None]
